FAERS Safety Report 16659162 (Version 2)
Quarter: 2019Q3

REPORT INFORMATION
  Report Type: Spontaneous
  Country: JP (occurrence: JP)
  Receive Date: 20190802
  Receipt Date: 20190816
  Transmission Date: 20191004
  Serious: Yes (Other)
  Sender: FDA-Public Use
  Company Number: JP-MTPC-MTPC2019-0065043

PATIENT

DRUGS (1)
  1. RADICUT INJ. 30MG [Suspect]
     Active Substance: EDARAVONE
     Route: 041

REACTIONS (1)
  - Cerebral infarction [Unknown]
